FAERS Safety Report 12419812 (Version 1)
Quarter: 2016Q2

REPORT INFORMATION
  Report Type: Spontaneous
  Country: CH (occurrence: CH)
  Receive Date: 20160531
  Receipt Date: 20160531
  Transmission Date: 20160815
  Serious: Yes (Hospitalization)
  Sender: FDA-Public Use
  Company Number: ALCN2016CH003676

PATIENT

DRUGS (5)
  1. CETALLERG [Suspect]
     Active Substance: CETIRIZINE HYDROCHLORIDE
     Dosage: 10 MG, QW2
     Route: 048
     Dates: start: 201512, end: 20160407
  2. OLFEN [Suspect]
     Active Substance: DICLOFENAC SODIUM
     Indication: BACK PAIN
     Dosage: 2 DF, ONCE/SINGLE
     Route: 048
     Dates: start: 20151204, end: 20151204
  3. SIMBRINZA [Suspect]
     Active Substance: BRIMONIDINE TARTRATE\BRINZOLAMIDE
     Indication: GLAUCOMA
     Dosage: UNK
     Route: 047
  4. CETALLERG [Suspect]
     Active Substance: CETIRIZINE HYDROCHLORIDE
     Indication: URTICARIA
     Dosage: 10 MG, QD
     Route: 048
     Dates: start: 201512
  5. COSOPT [Suspect]
     Active Substance: DORZOLAMIDE HYDROCHLORIDE\TIMOLOL MALEATE
     Indication: GLAUCOMA
     Dosage: 1 DF, QD
     Route: 047

REACTIONS (2)
  - Urticaria [Unknown]
  - Drug-induced liver injury [Recovered/Resolved]

NARRATIVE: CASE EVENT DATE: 201512
